FAERS Safety Report 9133853 (Version 1)
Quarter: 2013Q1

REPORT INFORMATION
  Report Type: Spontaneous
  Country: US (occurrence: US)
  Receive Date: 20130303
  Receipt Date: 20130303
  Transmission Date: 20140127
  Serious: No
  Sender: FDA-Public Use
  Company Number: US-ENDO PHARMACEUTICALS INC.-VANT20120069

PATIENT
  Sex: Male

DRUGS (15)
  1. VANTAS [Suspect]
     Indication: PROSTATE CANCER
     Route: 058
     Dates: start: 20120214
  2. ALENDRONATE [Concomitant]
     Indication: PRODUCT USED FOR UNKNOWN INDICATION
     Route: 048
  3. ALLEGRA D 12 HOUR [Concomitant]
     Indication: PRODUCT USED FOR UNKNOWN INDICATION
     Dosage: 60MG-120MG
     Route: 048
  4. CENTRUM SILVER MEN^S [Concomitant]
     Indication: VITAMIN SUPPLEMENTATION
     Route: 048
  5. CLARITIN [Concomitant]
     Indication: PRODUCT USED FOR UNKNOWN INDICATION
     Dosage: UNK
     Route: 065
  6. CO-Q10 [Concomitant]
     Indication: PRODUCT USED FOR UNKNOWN INDICATION
     Route: 048
  7. ECOTRIN [Concomitant]
     Indication: PRODUCT USED FOR UNKNOWN INDICATION
     Dosage: UNK
     Route: 065
  8. GALANTAMINE HYDROBROMIDE [Concomitant]
     Indication: PRODUCT USED FOR UNKNOWN INDICATION
     Route: 048
  9. LIPITOR [Concomitant]
     Indication: PRODUCT USED FOR UNKNOWN INDICATION
     Route: 048
  10. MELOXICAM [Concomitant]
     Indication: PRODUCT USED FOR UNKNOWN INDICATION
     Route: 048
  11. METOPROLOL SUCCINATE [Concomitant]
     Indication: PRODUCT USED FOR UNKNOWN INDICATION
     Route: 048
  12. MOBIC [Concomitant]
     Indication: PRODUCT USED FOR UNKNOWN INDICATION
     Route: 048
  13. NAMENDA [Concomitant]
     Indication: PRODUCT USED FOR UNKNOWN INDICATION
     Route: 048
  14. PHENYTOIN SODIUM [Concomitant]
     Indication: PRODUCT USED FOR UNKNOWN INDICATION
     Route: 048
  15. TOPROL-XL [Concomitant]
     Indication: PRODUCT USED FOR UNKNOWN INDICATION
     Route: 048

REACTIONS (5)
  - Urinary hesitation [Not Recovered/Not Resolved]
  - Nocturia [Not Recovered/Not Resolved]
  - Urinary retention [Not Recovered/Not Resolved]
  - Erectile dysfunction [Not Recovered/Not Resolved]
  - Drug ineffective [Not Recovered/Not Resolved]
